FAERS Safety Report 21107487 (Version 1)
Quarter: 2022Q3

REPORT INFORMATION
  Report Type: Spontaneous
  Country: US (occurrence: None)
  Receive Date: 20220720
  Receipt Date: 20220720
  Transmission Date: 20221026
  Serious: No
  Sender: FDA-Public Use
  Company Number: None

PATIENT
  Sex: Female

DRUGS (1)
  1. OTEZLA [Suspect]
     Active Substance: APREMILAST
     Indication: Psoriatic arthropathy
     Dosage: TITRATION 55/28DS  TITRATION  55/28DS BY MOUTH
     Route: 048
     Dates: start: 202206

REACTIONS (2)
  - Drug ineffective [None]
  - Therapy interrupted [None]
